FAERS Safety Report 19719338 (Version 6)
Quarter: 2025Q1

REPORT INFORMATION
  Report Type: Report from Study
  Country: BR (occurrence: BR)
  Receive Date: 20210818
  Receipt Date: 20250211
  Transmission Date: 20250408
  Serious: Yes (Other)
  Sender: TAKEDA
  Company Number: BR-TAKEDA-BR202009198

PATIENT
  Age: 46 Year
  Sex: Male
  Weight: 58 kg

DRUGS (9)
  1. IDURSULFASE [Suspect]
     Active Substance: IDURSULFASE
     Indication: Mucopolysaccharidosis II
     Dosage: 5 DOSAGE FORM, 1/WEEK
  2. IDURSULFASE [Suspect]
     Active Substance: IDURSULFASE
  3. IDURSULFASE [Suspect]
     Active Substance: IDURSULFASE
  4. IDURSULFASE [Suspect]
     Active Substance: IDURSULFASE
     Dosage: 4 DOSAGE FORM, 1/WEEK
  5. IDURSULFASE [Suspect]
     Active Substance: IDURSULFASE
     Dosage: 5 DOSAGE FORM, 1/WEEK
  6. IDURSULFASE [Suspect]
     Active Substance: IDURSULFASE
     Dosage: UNK UNK, 1/WEEK
  7. JANSSEN COVID-19 VACCINE [Suspect]
     Active Substance: AD26.COV2.S
     Indication: Product used for unknown indication
  8. Reparil [Concomitant]
     Indication: Product used for unknown indication
  9. ACETAMINOPHEN [Concomitant]
     Active Substance: ACETAMINOPHEN
     Indication: Pain

REACTIONS (33)
  - Cardiomyopathy [Unknown]
  - Hydrocephalus [Unknown]
  - Intracranial pressure increased [Unknown]
  - Congenital osteodystrophy [Unknown]
  - Seizure [Unknown]
  - Deafness [Unknown]
  - Glaucoma [Not Recovered/Not Resolved]
  - Atrophy [Unknown]
  - Poor venous access [Unknown]
  - Illness [Unknown]
  - Peripheral swelling [Unknown]
  - Back pain [Unknown]
  - Cardiac disorder [Unknown]
  - Infusion site discharge [Unknown]
  - Hypoaesthesia [Unknown]
  - Off label use [Unknown]
  - Product dose omission issue [Unknown]
  - Product availability issue [Unknown]
  - Weight decreased [Not Recovered/Not Resolved]
  - Influenza [Not Recovered/Not Resolved]
  - Arthropathy [Unknown]
  - Cognitive disorder [Unknown]
  - Disease progression [Unknown]
  - Macrocephaly [Unknown]
  - Hepatosplenomegaly [Unknown]
  - Inappropriate schedule of product administration [Recovered/Resolved]
  - Respiratory disorder [Not Recovered/Not Resolved]
  - Allergy to synthetic fabric [Not Recovered/Not Resolved]
  - Visual impairment [Not Recovered/Not Resolved]
  - Nasopharyngitis [Unknown]
  - Fatigue [Not Recovered/Not Resolved]
  - Dyspnoea [Not Recovered/Not Resolved]
  - Headache [Not Recovered/Not Resolved]

NARRATIVE: CASE EVENT DATE: 20241106
